FAERS Safety Report 23658239 (Version 1)
Quarter: 2024Q1

REPORT INFORMATION
  Report Type: Spontaneous
  Country: US (occurrence: None)
  Receive Date: 20240320
  Receipt Date: 20240320
  Transmission Date: 20240409
  Serious: Yes (Hospitalization)
  Sender: FDA-Public Use
  Company Number: None

PATIENT
  Age: 46 Year
  Sex: Female
  Weight: 73.35 kg

DRUGS (3)
  1. XOFLUZA [Suspect]
     Active Substance: BALOXAVIR MARBOXIL
     Indication: Influenza
     Dates: start: 20240220, end: 20240220
  2. IBUPROFEN [Suspect]
     Active Substance: IBUPROFEN
  3. VITAMINS [Concomitant]
     Active Substance: VITAMINS

REACTIONS (5)
  - Haematochezia [None]
  - Diarrhoea [None]
  - Haemoglobin decreased [None]
  - Gastrointestinal ulcer haemorrhage [None]
  - Mucosal inflammation [None]

NARRATIVE: CASE EVENT DATE: 20240222
